FAERS Safety Report 16677054 (Version 1)
Quarter: 2019Q3

REPORT INFORMATION
  Report Type: Spontaneous
  Country: JP (occurrence: JP)
  Receive Date: 20190807
  Receipt Date: 20190807
  Transmission Date: 20191004
  Serious: Yes (Hospitalization)
  Sender: FDA-Public Use
  Company Number: JP-UCBSA-2019028677

PATIENT
  Age: 8 Decade
  Sex: Female

DRUGS (1)
  1. NEUPRO [Suspect]
     Active Substance: ROTIGOTINE
     Indication: MOVEMENT DISORDER
     Dosage: STREGNTH: 6 MG/24HOURS

REACTIONS (1)
  - Posture abnormal [Recovering/Resolving]
